FAERS Safety Report 12576080 (Version 3)
Quarter: 2016Q3

REPORT INFORMATION
  Report Type: Spontaneous
  Country: CN (occurrence: CN)
  Receive Date: 20160720
  Receipt Date: 20160819
  Transmission Date: 20161109
  Serious: Yes (Death, Hospitalization, Other)
  Sender: FDA-Public Use
  Company Number: CN-GILEAD-2016-0208116

PATIENT
  Age: 63 Year
  Sex: Female
  Weight: 50 kg

DRUGS (3)
  1. ENTECAVIR. [Suspect]
     Active Substance: ENTECAVIR
     Indication: HEPATITIS B
     Dosage: UNK
     Route: 065
     Dates: start: 201604
  2. HEPTODIN [Suspect]
     Active Substance: LAMIVUDINE
     Indication: HEPATITIS B
     Dosage: 100 MG, QD
     Route: 048
     Dates: start: 2014, end: 201604
  3. VIREAD [Suspect]
     Active Substance: TENOFOVIR DISOPROXIL FUMARATE
     Indication: HEPATITIS B
     Dosage: 300 MG, QD
     Route: 048
     Dates: start: 201604, end: 201606

REACTIONS (20)
  - Drug resistance [Unknown]
  - Gastrointestinal haemorrhage [Unknown]
  - Ocular icterus [Unknown]
  - Abdominal distension [Unknown]
  - Back pain [Unknown]
  - Decreased appetite [Unknown]
  - Suicidal ideation [Unknown]
  - Yellow skin [Unknown]
  - Melaena [Unknown]
  - Face oedema [Unknown]
  - Asthenia [Unknown]
  - Mental status changes [Unknown]
  - Pain [Unknown]
  - Death [Fatal]
  - Haematemesis [Unknown]
  - Vomiting [Unknown]
  - Jaundice [Unknown]
  - Blood creatine phosphokinase increased [Unknown]
  - Pain in extremity [Unknown]
  - Hepatic enzyme increased [Unknown]

NARRATIVE: CASE EVENT DATE: 2016
